FAERS Safety Report 5858615-X (Version None)
Quarter: 2008Q3

REPORT INFORMATION
  Report Type: 
  Country: None (occurrence: None)
  Receive Date: 20080826
  Receipt Date: 20080814
  Transmission Date: 20090109
  Serious: Yes (Other)
  Sender: FDA-Public Use
  Company Number: US-PFIZER INC-2008068941

PATIENT
  Sex: Female
  Weight: 109.09 kg

DRUGS (4)
  1. LYRICA [Suspect]
     Indication: DIABETIC NEUROPATHY
  2. LANTUS [Concomitant]
  3. INSULIN [Concomitant]
  4. LISINOPRIL [Concomitant]

REACTIONS (7)
  - BLOOD CHOLESTEROL INCREASED [None]
  - DIABETIC RETINOPATHY [None]
  - GLYCOSYLATED HAEMOGLOBIN INCREASED [None]
  - OEDEMA PERIPHERAL [None]
  - SOMNOLENCE [None]
  - VISION BLURRED [None]
  - WEIGHT INCREASED [None]
